FAERS Safety Report 10554246 (Version 1)
Quarter: 2014Q4

REPORT INFORMATION
  Report Type: Spontaneous
  Country: US (occurrence: None)
  Receive Date: 20141028
  Receipt Date: 20141028
  Transmission Date: 20150529
  Serious: Yes (Other)
  Sender: FDA-Public Use
  Company Number: 2014-US-013549

PATIENT
  Sex: Female
  Weight: 57.6 kg

DRUGS (17)
  1. OMEPRAZOLE. [Concomitant]
     Active Substance: OMEPRAZOLE
  2. XYREM [Suspect]
     Active Substance: SODIUM OXYBATE
     Indication: NARCOLEPSY
     Route: 048
     Dates: start: 201305
  3. DIMETHYL FUMARATE [Concomitant]
     Active Substance: DIMETHYL FUMARATE
  4. CELEBREX [Concomitant]
     Active Substance: CELECOXIB
  5. ADVAIR DISKUS [Concomitant]
     Active Substance: FLUTICASONE PROPIONATE\SALMETEROL XINAFOATE
  6. LEVOTHYROXINE [Concomitant]
     Active Substance: LEVOTHYROXINE
  7. PROBIOTIC ACIDOLPHILUS (LACTOBACILLUS ACIDOPHILUS) [Concomitant]
  8. XYREM [Suspect]
     Active Substance: SODIUM OXYBATE
     Indication: SOMNOLENCE
     Route: 048
     Dates: start: 201305
  9. VITAMIN C [Concomitant]
     Active Substance: ASCORBIC ACID
  10. VYANSE (LISDEXAMFETAMINE MESILATE) [Concomitant]
  11. MIRALAX (MACROGOL 3350) [Concomitant]
  12. CYMBALTA [Concomitant]
     Active Substance: DULOXETINE HYDROCHLORIDE
  13. VITAMIN D3 [Concomitant]
     Active Substance: CHOLECALCIFEROL
  14. MULTIVITAMIN (VITAMINS NOS) [Concomitant]
     Active Substance: VITAMINS
  15. VENTOLIN (SALBUTAMOL SULFATE) [Concomitant]
  16. VORTIOXETINE [Concomitant]
     Active Substance: VORTIOXETINE
  17. NASONEX [Concomitant]
     Active Substance: MOMETASONE FUROATE

REACTIONS (3)
  - Cardiomyopathy [None]
  - Sleep apnoea syndrome [None]
  - Feeling abnormal [None]
